FAERS Safety Report 14199449 (Version 2)
Quarter: 2017Q4

REPORT INFORMATION
  Report Type: Report from Study
  Country: BR (occurrence: BR)
  Receive Date: 20171117
  Receipt Date: 20171228
  Transmission Date: 20180321
  Serious: Yes (Death, Hospitalization)
  Sender: FDA-Public Use
  Company Number: BR-BAYER-2017-193375

PATIENT
  Age: 56 Year
  Sex: Male

DRUGS (13)
  1. ATENSINA [Concomitant]
     Active Substance: CLONIDINE
     Indication: HYPERTENSION
     Dosage: 0.200 MG, UNK
     Dates: start: 201501
  2. FUROSEMIDE. [Concomitant]
     Active Substance: FUROSEMIDE
     Indication: DIURETIC THERAPY
  3. VALSARTAN. [Concomitant]
     Active Substance: VALSARTAN
     Indication: HYPERTENSION
     Dosage: UNK
     Dates: start: 201501
  4. ENTECAVIR. [Concomitant]
     Active Substance: ENTECAVIR
     Indication: HEPATITIS B
     Dosage: UNK
     Dates: start: 201701
  5. METOPROLOL TARTRATE. [Concomitant]
     Active Substance: METOPROLOL TARTRATE
     Indication: HYPERTENSION
     Dosage: 100 MG, UNK
     Dates: start: 201501
  6. FUROSEMIDE. [Concomitant]
     Active Substance: FUROSEMIDE
     Indication: HYPERTENSION
     Dosage: 120 MG, UNK
     Dates: start: 201501
  7. NEXAVAR [Suspect]
     Active Substance: SORAFENIB
     Indication: HEPATOCELLULAR CARCINOMA
     Dosage: 400 MG, QD
     Dates: start: 20171118, end: 20171118
  8. HEPATITIS B IMMUNE GLOBULIN [Concomitant]
     Active Substance: HUMAN HEPATITIS B VIRUS IMMUNE GLOBULIN
  9. NEXAVAR [Suspect]
     Active Substance: SORAFENIB
     Indication: HEPATOCELLULAR CARCINOMA
     Dosage: 400 MG, BID
     Dates: start: 20171005
  10. LOSARTAN. [Concomitant]
     Active Substance: LOSARTAN
     Indication: HYPERTENSION
     Dosage: 640 MG, UNK
  11. JANUVIA [Concomitant]
     Active Substance: SITAGLIPTIN PHOSPHATE
     Indication: DIABETES MELLITUS
     Dosage: UNK
     Dates: start: 201604
  12. MANIDIPINE [Concomitant]
     Active Substance: MANIDIPINE
     Indication: HYPERTENSION
     Dosage: 20 MG, UNK
     Dates: start: 201501
  13. PROPRANOLOL [Concomitant]
     Active Substance: PROPRANOLOL HYDROCHLORIDE
     Indication: HYPERTENSION

REACTIONS (12)
  - Blood pressure fluctuation [Not Recovered/Not Resolved]
  - Arrhythmia [Fatal]
  - Malaise [Recovered/Resolved]
  - Hyperglycaemia [Recovered/Resolved]
  - Dizziness [Not Recovered/Not Resolved]
  - Chronic kidney disease [Fatal]
  - Pyrexia [Recovered/Resolved]
  - Insomnia [Recovered/Resolved]
  - Cardiac arrest [Fatal]
  - Chills [Recovered/Resolved]
  - Urinary tract infection [Unknown]
  - Anxiety [Recovered/Resolved]

NARRATIVE: CASE EVENT DATE: 201710
